FAERS Safety Report 4426715-7 (Version None)
Quarter: 2004Q3

REPORT INFORMATION
  Report Type: 
  Country: None (occurrence: None)
  Receive Date: 20040812
  Receipt Date: 20040812
  Transmission Date: 20050211
  Serious: Yes (Hospitalization)
  Sender: FDA-Public Use
  Company Number: None

PATIENT
  Age: 51 Year
  Sex: Male
  Weight: 89 kg

DRUGS (2)
  1. NAPROXEN [Suspect]
     Indication: PAIN
     Dosage: 375MG TWICE DAIL ORAL
     Route: 048
     Dates: start: 20040209, end: 20040728
  2. NAPROXEN [Suspect]
     Indication: PROCTALGIA
     Dosage: 375MG TWICE DAIL ORAL
     Route: 048
     Dates: start: 20040209, end: 20040728

REACTIONS (2)
  - ANAEMIA [None]
  - GASTROINTESTINAL HAEMORRHAGE [None]
